FAERS Safety Report 5001882-5 (Version None)
Quarter: 2006Q2

REPORT INFORMATION
  Report Type: 
  Country: None (occurrence: None)
  Receive Date: 20060515
  Receipt Date: 20050414
  Transmission Date: 20061013
  Serious: Yes (Disabling)
  Sender: FDA-Public Use
  Company Number: US-MERCK-0504USA03094

PATIENT
  Age: 33 Year
  Sex: Male
  Weight: 145 kg

DRUGS (1)
  1. VIOXX [Suspect]
     Indication: JOINT INJURY
     Route: 048
     Dates: start: 20010101, end: 20040101

REACTIONS (7)
  - DEPRESSION [None]
  - DIABETES MELLITUS [None]
  - HEART RATE ABNORMAL [None]
  - HYPERTENSION [None]
  - LUNG DISORDER [None]
  - OVERDOSE [None]
  - PALPITATIONS [None]
